FAERS Safety Report 17025913 (Version 1)
Quarter: 2019Q4

REPORT INFORMATION
  Report Type: Spontaneous
  Country: US (occurrence: US)
  Receive Date: 20191112
  Receipt Date: 20191112
  Transmission Date: 20200122
  Serious: Yes (Other)
  Sender: FDA-Public Use
  Company Number: None

PATIENT
  Age: 29 Year
  Sex: Male
  Weight: 59.5 kg

DRUGS (7)
  1. DIPHENHYDRAMINE 50 MG CAPSULE [Concomitant]
     Dates: start: 20191015, end: 20191015
  2. HYDROCORTISONE 50 MG [Concomitant]
     Dates: start: 20191015, end: 20191015
  3. HYDROCORTISONE 100MG INTRAVENOUS [Concomitant]
     Dates: start: 20191015, end: 20191015
  4. ACETAMINOPHEN 650 MG TABLET [Concomitant]
     Dates: start: 20191015, end: 20191015
  5. ONDANSETRON 8 MG TABLET BY MOUTH [Concomitant]
     Dates: start: 20191015, end: 20191015
  6. METHOTREXATE 15 MG INTRATHECAL [Concomitant]
     Dates: start: 20191015, end: 20191015
  7. PEGASPARGASE [Suspect]
     Active Substance: PEGASPARGASE
     Indication: ACUTE LYMPHOCYTIC LEUKAEMIA
     Dosage: ?          OTHER FREQUENCY:ONCE;?
     Route: 041
     Dates: start: 20191015, end: 20191015

REACTIONS (5)
  - Infusion related reaction [None]
  - Chest discomfort [None]
  - Nausea [None]
  - Rash [None]
  - Incorrect dose administered [None]

NARRATIVE: CASE EVENT DATE: 20191015
